FAERS Safety Report 5507166-0 (Version None)
Quarter: 2007Q4

REPORT INFORMATION
  Report Type: 
  Country: None (occurrence: None)
  Receive Date: 20071102
  Receipt Date: 20071026
  Transmission Date: 20080405
  Serious: Yes (Other)
  Sender: FDA-Public Use
  Company Number: 161776USA

PATIENT
  Age: 76 Year
  Sex: Female

DRUGS (1)
  1. AMOXICILLIN [Suspect]

REACTIONS (4)
  - ADVERSE DRUG REACTION [None]
  - ASTHENIA [None]
  - MYELODYSPLASTIC SYNDROME [None]
  - PANCYTOPENIA [None]
